FAERS Safety Report 14492845 (Version 1)
Quarter: 2018Q1

REPORT INFORMATION
  Report Type: Spontaneous
  Country: US (occurrence: US)
  Receive Date: 20180206
  Receipt Date: 20180206
  Transmission Date: 20180509
  Serious: No
  Sender: FDA-Public Use
  Company Number: US-JNJFOC-20171229442

PATIENT
  Sex: Female

DRUGS (2)
  1. PEPCID AC MAXIMUM STRENGTH [Suspect]
     Active Substance: FAMOTIDINE
     Indication: DYSPEPSIA
     Route: 048
     Dates: end: 20171219
  2. PEPCID AC MAXIMUM STRENGTH [Suspect]
     Active Substance: FAMOTIDINE
     Route: 048

REACTIONS (1)
  - Drug ineffective [Unknown]
